FAERS Safety Report 22028528 (Version 1)
Quarter: 2023Q1

REPORT INFORMATION
  Report Type: Spontaneous
  Country: US (occurrence: None)
  Receive Date: 20230223
  Receipt Date: 20230223
  Transmission Date: 20230417
  Serious: No
  Sender: FDA-Public Use
  Company Number: US-ROCHE-3200630

PATIENT
  Sex: Male

DRUGS (6)
  1. NUTROPIN [Suspect]
     Active Substance: SOMATROPIN
     Indication: Hypopituitarism
     Route: 058
  2. NUTROPIN [Suspect]
     Active Substance: SOMATROPIN
  3. NUTROPIN [Suspect]
     Active Substance: SOMATROPIN
     Route: 058
  4. NUTROPIN [Suspect]
     Active Substance: SOMATROPIN
  5. NUTROPIN [Suspect]
     Active Substance: SOMATROPIN
     Route: 058
  6. NUTROPIN [Suspect]
     Active Substance: SOMATROPIN

REACTIONS (2)
  - Product prescribing error [Unknown]
  - Injection site pain [Unknown]

NARRATIVE: CASE EVENT DATE: 20220831
